FAERS Safety Report 20125280 (Version 1)
Quarter: 2021Q4

REPORT INFORMATION
  Report Type: Spontaneous
  Country: US (occurrence: US)
  Receive Date: 20211129
  Receipt Date: 20211129
  Transmission Date: 20220303
  Serious: Yes (Other)
  Sender: FDA-Public Use
  Company Number: US-SEBELA IRELAND LIMITED-2021SEB00141

PATIENT
  Age: 60 Year
  Sex: Male

DRUGS (3)
  1. AZATHIOPRINE [Suspect]
     Active Substance: AZATHIOPRINE
     Indication: Product used for unknown indication
     Dosage: UNK
  2. JAKAFI [Suspect]
     Active Substance: RUXOLITINIB
     Indication: Myeloproliferative neoplasm
     Dosage: 15 MG, 2X/DAY
     Route: 048
     Dates: start: 20210714
  3. JAKAFI [Suspect]
     Active Substance: RUXOLITINIB
     Indication: Janus kinase 2 mutation

REACTIONS (10)
  - Autoimmune hepatitis [Unknown]
  - Immunosuppression [Unknown]
  - Lymphadenopathy [Unknown]
  - Pelvic pain [Unknown]
  - Constipation [Unknown]
  - Abdominal distension [Unknown]
  - Anorectal discomfort [Unknown]
  - Abdominal pain lower [Unknown]
  - Diarrhoea [Unknown]
  - Nausea [Unknown]

NARRATIVE: CASE EVENT DATE: 20210101
